FAERS Safety Report 9162388 (Version 2)
Quarter: 2013Q2

REPORT INFORMATION
  Report Type: Spontaneous
  Country: US (occurrence: US)
  Receive Date: 20130314
  Receipt Date: 20130410
  Transmission Date: 20140414
  Serious: No
  Sender: FDA-Public Use
  Company Number: US-PFIZER INC-2013085982

PATIENT
  Age: 58 Year
  Sex: Male
  Weight: 136 kg

DRUGS (2)
  1. CHANTIX [Suspect]
     Indication: SMOKING CESSATION THERAPY
     Dosage: 0.5 MG DAILY
     Route: 048
     Dates: start: 20130311
  2. ADVIL [Concomitant]
     Dosage: 200 MG, UNK

REACTIONS (2)
  - Abnormal dreams [Unknown]
  - Fear [Unknown]
